FAERS Safety Report 4660416-5 (Version None)
Quarter: 2005Q2

REPORT INFORMATION
  Report Type: 
  Country: None (occurrence: None)
  Receive Date: 20050512
  Receipt Date: 20050510
  Transmission Date: 20051028
  Serious: Yes (Hospitalization)
  Sender: FDA-Public Use
  Company Number: 159

PATIENT
  Age: 53 Year
  Sex: Female
  Weight: 58 kg

DRUGS (5)
  1. MELPHALAN [Suspect]
     Indication: MULTIPLE MYELOMA
     Dosage: 298MG SINGLE DOSE
     Route: 042
     Dates: start: 20050120
  2. THALIDOMIDE [Suspect]
     Route: 048
  3. ATIVAN [Concomitant]
     Dates: end: 20050328
  4. PAXIL CR [Concomitant]
     Indication: DEPRESSION
     Route: 048
  5. REGLAN [Concomitant]
     Indication: NAUSEA
     Dosage: 20MG FOUR TIMES PER DAY
     Route: 048

REACTIONS (11)
  - ANXIETY [None]
  - CHILLS [None]
  - CHOLELITHIASIS [None]
  - DIARRHOEA [None]
  - DRUG WITHDRAWAL SYNDROME [None]
  - FATIGUE [None]
  - FEELING COLD [None]
  - FEELING HOT [None]
  - FEELING JITTERY [None]
  - HEART RATE INCREASED [None]
  - HYPOTENSION [None]
